FAERS Safety Report 26187794 (Version 1)
Quarter: 2025Q4

REPORT INFORMATION
  Report Type: Spontaneous
  Country: US (occurrence: US)
  Receive Date: 20251222
  Receipt Date: 20251222
  Transmission Date: 20260117
  Serious: No
  Sender: BRISTOL-MYERS SQUIBB COMPANY
  Company Number: US-BRISTOL-MYERS SQUIBB COMPANY-2025-171191

PATIENT
  Age: 65 Year
  Sex: Male
  Weight: 124.74 kg

DRUGS (1)
  1. POMALYST [Suspect]
     Active Substance: POMALIDOMIDE
     Indication: Plasma cell myeloma recurrent
     Dosage: DAILY AT BEDTIME FOR 21 DAYS, STOP FOR 7 DAYS FOR A 28 DAY CYCLE
     Route: 048

REACTIONS (1)
  - Constipation [Recovering/Resolving]
